FAERS Safety Report 8470877-1 (Version None)
Quarter: 2012Q2

REPORT INFORMATION
  Report Type: 
  Country: None (occurrence: None)
  Receive Date: 20120323
  Receipt Date: 20111129
  Transmission Date: 20120825
  Serious: Yes (Other)
  Sender: FDA-Public Use
  Company Number: 163-21880-11101462

PATIENT
  Age: 69 Year
  Sex: Female

DRUGS (8)
  1. DEXAMETHASONE [Concomitant]
  2. METFORMIN HCL [Concomitant]
  3. TYLENOL (PARACETAMOL) (UNKNOWN) [Concomitant]
  4. WARFARIN SODIUM [Concomitant]
  5. LENALIDOMIDE [Suspect]
     Indication: MULTIPLE MYELOMA
     Dosage: 25 MG, DAILY, PO
     Route: 048
     Dates: start: 20090109
  6. TRIAMTERENE-HCTZ (DYAZIDE) (UNKNOWN) [Concomitant]
  7. GLIPIZIDE [Concomitant]
  8. LOVASTATIN (LOVASTATIN) (UNKNOWN) [Concomitant]

REACTIONS (2)
  - INFECTION [None]
  - HAEMOGLOBIN DECREASED [None]
